FAERS Safety Report 5788856-1 (Version None)
Quarter: 2008Q2

REPORT INFORMATION
  Report Type: 
  Country: None (occurrence: None)
  Receive Date: 20080626
  Receipt Date: 20080618
  Transmission Date: 20081010
  Serious: Yes (Hospitalization)
  Sender: FDA-Public Use
  Company Number: JP-WATSON-2008-03709

PATIENT
  Age: 35 Year
  Sex: Female

DRUGS (3)
  1. PREDNISOLONE (WATSON LABORATORIES) [Suspect]
     Indication: PROPHYLAXIS
     Dosage: 0.5 MG/KG, DAILY
     Route: 065
  2. PREDNISOLONE (WATSON LABORATORIES) [Suspect]
     Indication: AUTOIMMUNE HEPATITIS
     Dosage: 0.75 MG/KG, DAILY
     Route: 065
  3. METHOTREXATE [Concomitant]
     Indication: PROPHYLAXIS
     Dosage: SHORT COURSE OF METHOTREXATE

REACTIONS (1)
  - ADENOVIRUS INFECTION [None]
